FAERS Safety Report 10152252 (Version 1)
Quarter: 2014Q2

REPORT INFORMATION
  Report Type: Spontaneous
  Country: HU (occurrence: HU)
  Receive Date: 20140505
  Receipt Date: 20140505
  Transmission Date: 20141212
  Serious: Yes (Hospitalization)
  Sender: FDA-Public Use
  Company Number: HU-SA-2014SA047285

PATIENT
  Age: 66 Year
  Sex: Male

DRUGS (3)
  1. ACETYLSALICYLIC ACID [Suspect]
     Indication: PLATELET AGGREGATION INHIBITION
     Dosage: STRENGTH: 100 MG ACETYLSALICYLIC ACID
     Route: 065
  2. CLOPIDOGREL BISULFATE [Suspect]
     Indication: PLATELET AGGREGATION INHIBITION
     Dosage: STRENGTH: 75 MG CLOPIDOGREL
     Route: 065
  3. CLOPIDOGREL BISULFATE [Suspect]
     Indication: PLATELET AGGREGATION INHIBITION
     Dosage: STRENGTH: 75 MG CLOPIDOGREL
     Route: 065

REACTIONS (3)
  - Gastritis erosive [Unknown]
  - Gastric haemorrhage [Unknown]
  - Iron deficiency anaemia [Unknown]
